FAERS Safety Report 15765356 (Version 2)
Quarter: 2019Q3

REPORT INFORMATION
  Report Type: Spontaneous
  Country: JP (occurrence: JP)
  Receive Date: 20181227
  Receipt Date: 20190925
  Transmission Date: 20191004
  Serious: Yes (Hospitalization, Other)
  Sender: FDA-Public Use
  Company Number: JP-SA-2018SA392774

PATIENT
  Age: 84 Year
  Sex: Male
  Weight: 60 kg

DRUGS (16)
  1. ELPLAT [Suspect]
     Active Substance: OXALIPLATIN
     Indication: METASTASES TO LUNG
     Dosage: 146 MG, QCY, ONCE IN 2 WEEKS
     Route: 041
     Dates: start: 20170426, end: 20170426
  2. BEVACIZUMAB. [Suspect]
     Active Substance: BEVACIZUMAB
     Indication: METASTASES TO LUNG
     Dosage: 450 MG, QCY, ONCE IN 2 WEEKS
     Route: 041
     Dates: start: 20170426, end: 2017
  3. BEVACIZUMAB. [Suspect]
     Active Substance: BEVACIZUMAB
     Indication: COLON CANCER
     Dosage: UNK UNK, QCY
  4. EMEND [Concomitant]
     Active Substance: APREPITANT
     Dosage: UNK
     Dates: start: 20170426, end: 2017
  5. DECADRON [Concomitant]
     Active Substance: DEXAMETHASONE
     Dosage: UNK
     Dates: start: 20170426, end: 2017
  6. FOLINIC ACID [Suspect]
     Active Substance: LEUCOVORIN
     Indication: METASTASES TO LUNG
     Dosage: UNK, QCY
  7. FLUOROURACIL. [Suspect]
     Active Substance: FLUOROURACIL
     Indication: COLON CANCER
     Dosage: 4100 MG, QCY, ONCE IN 2WEEKS
     Route: 041
     Dates: start: 20170426, end: 20170429
  8. ALOXI [Concomitant]
     Active Substance: PALONOSETRON HYDROCHLORIDE
     Dosage: UNK
     Dates: start: 20170426, end: 2017
  9. DEXART [Concomitant]
     Active Substance: DEXAMETHASONE SODIUM PHOSPHATE
     Dosage: UNK
     Dates: start: 20170426, end: 2017
  10. ELPLAT [Suspect]
     Active Substance: OXALIPLATIN
     Indication: COLON CANCER
     Dosage: 116 MG, ONCE IN 2 WEEKS
     Route: 041
     Dates: start: 20170523, end: 20170523
  11. FLUOROURACIL. [Suspect]
     Active Substance: FLUOROURACIL
     Dosage: 3288 MG, ONCE IN 2 WEEKS
     Route: 041
     Dates: start: 20170523, end: 2017
  12. LEVOFOLINATE CALCIUM [Suspect]
     Active Substance: LEVOLEUCOVORIN CALCIUM
     Indication: COLON CANCER
     Dosage: 272 MG ONCE IN 2 WEEKS
     Dates: start: 20170523, end: 2017
  13. FLUOROURACIL. [Suspect]
     Active Substance: FLUOROURACIL
     Indication: METASTASES TO LUNG
     Dosage: 688 MG, QCY, ONCE IN 2 WEEKS
     Route: 040
     Dates: start: 20170426, end: 20170426
  14. LEVOFOLINATE CALCIUM [Suspect]
     Active Substance: LEVOLEUCOVORIN CALCIUM
     Dosage: 340 MG ONCE IN 2 WEEKS
     Route: 041
     Dates: start: 20170426, end: 20170426
  15. FLUOROURACIL. [Suspect]
     Active Substance: FLUOROURACIL
     Dosage: 550 MG ONCE IN 2WEEKS
     Route: 040
     Dates: start: 20170523, end: 2017
  16. FOLINIC ACID [Suspect]
     Active Substance: LEUCOVORIN
     Dosage: UNK UNK, QCY

REACTIONS (1)
  - Gastrointestinal toxicity [Recovered/Resolved]

NARRATIVE: CASE EVENT DATE: 20171007
